FAERS Safety Report 22032683 (Version 2)
Quarter: 2023Q1

REPORT INFORMATION
  Report Type: Report from Study
  Country: US (occurrence: None)
  Receive Date: 20230224
  Receipt Date: 20230302
  Transmission Date: 20230417
  Serious: Yes (Hospitalization)
  Sender: FDA-Public Use
  Company Number: 2023A042694

PATIENT

DRUGS (1)
  1. ROFLUMILAST [Suspect]
     Active Substance: ROFLUMILAST
     Indication: Asthma
     Dosage: 500MCG EVERY OTHER DAY FOR THE FIRST 2 WEEKS AND THEN 500 MCG PER DAY
     Route: 048

REACTIONS (1)
  - Hernia pain [Unknown]
